FAERS Safety Report 7185467-0 (Version None)
Quarter: 2010Q4

REPORT INFORMATION
  Report Type: 
  Country: None (occurrence: None)
  Receive Date: 20101222
  Receipt Date: 20101209
  Transmission Date: 20110411
  Serious: Yes (Hospitalization)
  Sender: FDA-Public Use
  Company Number: HR-GENZYME-CAMP-1001208

PATIENT
  Sex: Female
  Weight: 67 kg

DRUGS (1)
  1. ALEMTUZUMAB [Suspect]
     Indication: MULTIPLE SCLEROSIS
     Dosage: UNK UNK, UNK
     Route: 065

REACTIONS (1)
  - VAGINAL HAEMORRHAGE [None]
